FAERS Safety Report 4297080-3 (Version None)
Quarter: 2004Q1

REPORT INFORMATION
  Report Type: 
  Country: None (occurrence: None)
  Receive Date: 20040213
  Receipt Date: 20040204
  Transmission Date: 20041129
  Serious: Yes (Other)
  Sender: FDA-Public Use
  Company Number: 2004-02-0211

PATIENT
  Age: 35 Year
  Sex: Male
  Weight: 90.7194 kg

DRUGS (1)
  1. AFRIN [Suspect]
     Indication: SINUS CONGESTION
     Dosage: INTRANASAL
     Route: 045

REACTIONS (2)
  - HEADACHE [None]
  - METAL POISONING [None]
